FAERS Safety Report 9014170 (Version 1)
Quarter: 2013Q1

REPORT INFORMATION
  Report Type: Spontaneous
  Country: BR (occurrence: BR)
  Receive Date: 20130115
  Receipt Date: 20130115
  Transmission Date: 20140127
  Serious: Yes (Other)
  Sender: FDA-Public Use
  Company Number: PHHY2013BR002436

PATIENT
  Age: 69 Year
  Sex: Male

DRUGS (3)
  1. DIOVAN HCT [Suspect]
     Indication: HYPERTENSION
     Dosage: 1 DF (320/12.5 MG) DAILY
     Route: 048
  2. ENALAPRIL [Suspect]
     Indication: HYPERTENSION
     Dosage: 2 DF, PER DAY
     Route: 048
  3. AMLODIPINE [Suspect]
     Dosage: 1 DF, PER DAY

REACTIONS (2)
  - Haematochezia [Not Recovered/Not Resolved]
  - Dry mouth [Not Recovered/Not Resolved]
